FAERS Safety Report 7940036-7 (Version None)
Quarter: 2011Q4

REPORT INFORMATION
  Report Type: 
  Country: None (occurrence: None)
  Receive Date: 20111125
  Receipt Date: 20111117
  Transmission Date: 20120403
  Serious: Yes (Other)
  Sender: FDA-Public Use
  Company Number: PHHY2011CN102060

PATIENT
  Sex: Male

DRUGS (7)
  1. PHENOBARBITAL TAB [Interacting]
     Indication: ENCEPHALITIS
     Dosage: 0.2 G, Q6H
     Route: 042
     Dates: start: 20070801
  2. LEVETIRACETAM [Interacting]
     Dosage: 1.5 G, Q12H
  3. LEVETIRACETAM [Interacting]
     Dosage: 2 G, UNK
  4. PHENOBARBITAL TAB [Interacting]
     Dosage: 0.1 G, UNK
  5. PHENOBARBITAL TAB [Interacting]
     Dosage: 02 G, UNK
  6. LEVETIRACETAM [Suspect]
     Indication: ENCEPHALITIS
     Dosage: 0.5 G, Q12H
  7. LEVETIRACETAM [Interacting]
     Dosage: 1.5 G, UNK

REACTIONS (4)
  - CONVULSION [None]
  - TREMOR [None]
  - DRUG LEVEL DECREASED [None]
  - DRUG INTERACTION [None]
